FAERS Safety Report 5654461-0 (Version None)
Quarter: 2008Q1

REPORT INFORMATION
  Report Type: 
  Country: None (occurrence: None)
  Receive Date: 20080305
  Receipt Date: 20080219
  Transmission Date: 20080703
  Serious: Yes (Other)
  Sender: FDA-Public Use
  Company Number: 2008SP000378

PATIENT
  Age: 42 Year
  Sex: Male

DRUGS (3)
  1. LUNESTA [Suspect]
     Indication: INSOMNIA
     Dosage: 3 MG;PRN;ORAL
     Route: 048
     Dates: start: 20070101, end: 20080210
  2. LISINOPRIL [Suspect]
     Indication: HYPERTENSION
     Dosage: 20 MG;
     Dates: end: 20080211
  3. TOPAMAX [Concomitant]

REACTIONS (13)
  - ALCOHOL WITHDRAWAL SYNDROME [None]
  - ASPARTATE AMINOTRANSFERASE INCREASED [None]
  - BLOOD BILIRUBIN INCREASED [None]
  - CEREBRAL ATROPHY [None]
  - EAR CANAL ABRASION [None]
  - EAR HAEMORRHAGE [None]
  - FAECAL INCONTINENCE [None]
  - GRAND MAL CONVULSION [None]
  - HYPERSENSITIVITY [None]
  - MIDDLE INSOMNIA [None]
  - MOUTH INJURY [None]
  - SINUS TACHYCARDIA [None]
  - URINARY INCONTINENCE [None]
